FAERS Safety Report 11432621 (Version 2)
Quarter: 2015Q3

REPORT INFORMATION
  Report Type: Spontaneous
  Country: US (occurrence: US)
  Receive Date: 20150828
  Receipt Date: 20150902
  Transmission Date: 20151125
  Serious: No
  Sender: FDA-Public Use
  Company Number: US-009507513-1508USA008528

PATIENT

DRUGS (1)
  1. CRIXIVAN [Suspect]
     Active Substance: INDINAVIR SULFATE
     Dosage: 2 DF, TID(TWO CAPSULES THREE TIMES A DAY)
     Route: 048

REACTIONS (3)
  - Underdose [Unknown]
  - Product packaging quantity issue [Unknown]
  - No adverse event [Unknown]
